FAERS Safety Report 7452935-3 (Version None)
Quarter: 2011Q2

REPORT INFORMATION
  Report Type: 
  Country: None (occurrence: None)
  Receive Date: 20110502
  Receipt Date: 20101025
  Transmission Date: 20111010
  Serious: Yes (Hospitalization)
  Sender: FDA-Public Use
  Company Number: US-ASTRAZENECA-2010SE50437

PATIENT
  Sex: Female
  Weight: 88.5 kg

DRUGS (7)
  1. ZENPEP ENZYMES [Concomitant]
  2. KLONOPIN [Concomitant]
  3. NEXIUM [Suspect]
     Indication: GASTROOESOPHAGEAL REFLUX DISEASE
     Route: 048
  4. SEROQUEL [Suspect]
     Indication: BIPOLAR DISORDER
     Route: 048
  5. WELLBUTRIN [Concomitant]
  6. PRILOSEC [Suspect]
     Indication: GASTROOESOPHAGEAL REFLUX DISEASE
     Route: 048
  7. GLUCOPHAGE [Concomitant]

REACTIONS (3)
  - PANCREATITIS [None]
  - DRUG INEFFECTIVE [None]
  - DIABETES MELLITUS [None]
